FAERS Safety Report 7055757-0 (Version None)
Quarter: 2010Q4

REPORT INFORMATION
  Report Type: 
  Country: None (occurrence: None)
  Receive Date: 20101021
  Receipt Date: 20101014
  Transmission Date: 20110411
  Serious: Yes (Other)
  Sender: FDA-Public Use
  Company Number: DE-ROCHE-734213

PATIENT
  Age: 42 Year
  Sex: Female

DRUGS (4)
  1. ROCEPHIN [Suspect]
     Indication: INFECTION
     Route: 042
     Dates: end: 20100801
  2. ZINK [Concomitant]
     Route: 048
     Dates: start: 20100901
  3. SELEN [Concomitant]
     Route: 048
     Dates: start: 20100901
  4. OMACOR [Concomitant]
     Route: 048
     Dates: start: 20100901

REACTIONS (2)
  - ALOPECIA [None]
  - DERMATITIS ALLERGIC [None]
